FAERS Safety Report 5331881-5 (Version None)
Quarter: 2007Q2

REPORT INFORMATION
  Report Type: 
  Country: None (occurrence: None)
  Receive Date: 20070521
  Receipt Date: 20070503
  Transmission Date: 20071010
  Serious: Yes (Other)
  Sender: FDA-Public Use
  Company Number: DSA_29857_2007

PATIENT

DRUGS (2)
  1. DILTIAZEM [Suspect]
     Dosage: (ORAL)
     Route: 048
  2. RYTHMOL [Suspect]
     Dosage: (ORAL)
     Route: 048

REACTIONS (1)
  - HEPATITIS ACUTE [None]
